FAERS Safety Report 4582568-8 (Version None)
Quarter: 2005Q1

REPORT INFORMATION
  Report Type: 
  Country: None (occurrence: None)
  Receive Date: 20050215
  Receipt Date: 20050204
  Transmission Date: 20050727
  Serious: Yes (Hospitalization)
  Sender: FDA-Public Use
  Company Number: 200510459FR

PATIENT
  Age: 80 Year
  Sex: Female

DRUGS (7)
  1. LASILIX 40 MG [Suspect]
     Route: 048
     Dates: end: 20041228
  2. LACTEOL [Suspect]
     Route: 048
     Dates: start: 20041220, end: 20041228
  3. TIORFAN [Suspect]
     Route: 048
     Dates: start: 20041220, end: 20041228
  4. AMLODIPINE BESYLATE [Concomitant]
     Route: 048
  5. ZESTRIL [Concomitant]
     Route: 048
  6. ALDACTONE [Concomitant]
     Route: 048
  7. DIPROSONE [Concomitant]

REACTIONS (6)
  - BALANCE DISORDER [None]
  - BLOOD SODIUM DECREASED [None]
  - CONFUSIONAL STATE [None]
  - DIARRHOEA [None]
  - DISORIENTATION [None]
  - FALL [None]
